FAERS Safety Report 17886240 (Version 2)
Quarter: 2020Q4

REPORT INFORMATION
  Report Type: Spontaneous
  Country: US (occurrence: US)
  Receive Date: 20200611
  Receipt Date: 20201113
  Transmission Date: 20210113
  Serious: Yes (Hospitalization)
  Sender: FDA-Public Use
  Company Number: US-STRONGBRIDGE BIOPHARMA-2020-STR-000138

PATIENT
  Age: 23 Year
  Sex: Female

DRUGS (1)
  1. KEVEYIS [Suspect]
     Active Substance: DICHLORPHENAMIDE
     Indication: MYOTONIA
     Dosage: 50 MG, BID
     Route: 048
     Dates: start: 20200606

REACTIONS (8)
  - Dysgeusia [Unknown]
  - Fall [Unknown]
  - Paraesthesia [Unknown]
  - Contusion [Unknown]
  - Aphasia [Unknown]
  - Muscle spasms [Unknown]
  - Muscle spasms [Unknown]
  - Heart rate increased [Unknown]

NARRATIVE: CASE EVENT DATE: 20200606
